FAERS Safety Report 10011581 (Version 3)
Quarter: 2014Q1

REPORT INFORMATION
  Report Type: Report from Study
  Country: DE (occurrence: DE)
  Receive Date: 20140314
  Receipt Date: 20140321
  Transmission Date: 20141002
  Serious: Yes (Hospitalization)
  Sender: FDA-Public Use
  Company Number: DE-ASTELLAS-2012US012570

PATIENT
  Age: 13 Year
  Sex: Male

DRUGS (1)
  1. TACROLIMUS OINTMENT [Suspect]
     Indication: DERMATITIS ATOPIC
     Dosage: 0.3 %, BID
     Route: 061
     Dates: start: 20101202

REACTIONS (2)
  - Anal abscess [Recovered/Resolved]
  - Anal abscess [Recovered/Resolved]
